FAERS Safety Report 21838426 (Version 3)
Quarter: 2023Q2

REPORT INFORMATION
  Report Type: Spontaneous
  Country: US (occurrence: US)
  Receive Date: 20230109
  Receipt Date: 20230407
  Transmission Date: 20230721
  Serious: No
  Sender: FDA-Public Use
  Company Number: US-SA-SAC20230106000355

PATIENT
  Age: 13 Year
  Sex: Female
  Weight: 79.83 kg

DRUGS (1)
  1. DUPIXENT [Suspect]
     Active Substance: DUPILUMAB
     Indication: Dermatitis atopic
     Dosage: 300 MG, QOW
     Route: 058
     Dates: start: 20210722, end: 20221221

REACTIONS (2)
  - Eye infection [Unknown]
  - Eye irritation [Unknown]

NARRATIVE: CASE EVENT DATE: 20210722
